FAERS Safety Report 12085223 (Version 1)
Quarter: 2016Q1

REPORT INFORMATION
  Report Type: Report from Study
  Country: US (occurrence: US)
  Receive Date: 20160217
  Receipt Date: 20160217
  Transmission Date: 20160526
  Serious: Yes (Hospitalization)
  Sender: FDA-Public Use
  Company Number: US-ASTRAZENECA-2016SE14421

PATIENT
  Age: 21894 Day
  Sex: Male

DRUGS (15)
  1. METFORMIN [Concomitant]
     Active Substance: METFORMIN HYDROCHLORIDE
     Indication: TYPE 2 DIABETES MELLITUS
     Route: 048
  2. HYDRALAZINE [Concomitant]
     Active Substance: HYDRALAZINE HYDROCHLORIDE
     Indication: HYPERTENSION
     Route: 048
  3. ISOSORBIDE DINITRATE. [Concomitant]
     Active Substance: ISOSORBIDE DINITRATE
     Indication: CORONARY ARTERY DISEASE
     Route: 048
  4. ATORVASTATIN [Concomitant]
     Active Substance: ATORVASTATIN
     Indication: HYPERLIPIDAEMIA
     Route: 048
  5. CHLORTHALIDONE. [Concomitant]
     Active Substance: CHLORTHALIDONE
     Indication: HYPERTENSION
     Route: 048
  6. TICAGRELOR [Suspect]
     Active Substance: TICAGRELOR
     Indication: CARDIOVASCULAR EVENT PROPHYLAXIS
     Dosage: 60 MG
     Route: 048
     Dates: start: 20151201
  7. ASPIRIN. [Concomitant]
     Active Substance: ASPIRIN
     Indication: CORONARY ARTERY DISEASE
     Route: 048
  8. ISOSORBIDE DINITRATE. [Concomitant]
     Active Substance: ISOSORBIDE DINITRATE
     Indication: ANGINA PECTORIS
     Route: 048
  9. CARVEDILOL. [Concomitant]
     Active Substance: CARVEDILOL
     Indication: HYPERTENSION
     Route: 048
  10. GLIPIZIDE. [Concomitant]
     Active Substance: GLIPIZIDE
     Indication: TYPE 2 DIABETES MELLITUS
     Route: 048
     Dates: start: 20141231
  11. CARVEDILOL. [Concomitant]
     Active Substance: CARVEDILOL
     Indication: CORONARY ARTERY DISEASE
     Route: 048
  12. FISH OIL [Concomitant]
     Active Substance: FISH OIL
     Indication: HYPERLIPIDAEMIA
     Route: 048
     Dates: start: 20141207
  13. MINOXIDIL. [Concomitant]
     Active Substance: MINOXIDIL
     Indication: HYPERTENSION
     Route: 048
     Dates: start: 20150219
  14. TICAGRELOR [Suspect]
     Active Substance: TICAGRELOR
     Indication: CARDIOVASCULAR EVENT PROPHYLAXIS
     Route: 048
     Dates: start: 20141126, end: 20151201
  15. AMLODIPINE [Concomitant]
     Active Substance: AMLODIPINE BESYLATE
     Indication: HYPERTENSION
     Route: 048

REACTIONS (1)
  - Cardiac failure congestive [Recovered/Resolved]

NARRATIVE: CASE EVENT DATE: 20160203
